FAERS Safety Report 22256402 (Version 1)
Quarter: 2023Q2

REPORT INFORMATION
  Report Type: Spontaneous
  Country: US (occurrence: US)
  Receive Date: 20230426
  Receipt Date: 20230426
  Transmission Date: 20230721
  Serious: No
  Sender: FDA-Public Use
  Company Number: US-BRISTOL-MYERS SQUIBB COMPANY-2023-059614

PATIENT
  Age: 72 Year
  Sex: Male
  Weight: 80.56 kg

DRUGS (1)
  1. REVLIMID [Suspect]
     Active Substance: LENALIDOMIDE
     Indication: Monoclonal gammopathy
     Dosage: FREQUENCY-3W, 1W OFF
     Route: 048

REACTIONS (2)
  - Constipation [Unknown]
  - Off label use [Unknown]
